FAERS Safety Report 10186013 (Version 2)
Quarter: 2014Q2

REPORT INFORMATION
  Report Type: Spontaneous
  Country: US (occurrence: US)
  Receive Date: 20140521
  Receipt Date: 20140627
  Transmission Date: 20141212
  Serious: Yes (Death, Hospitalization, Other)
  Sender: FDA-Public Use
  Company Number: US-MERCK-1405USA009235

PATIENT
  Sex: Male
  Weight: 107.48 kg

DRUGS (2)
  1. JANUVIA [Suspect]
     Indication: TYPE 2 DIABETES MELLITUS
     Dosage: 50 MG, QD
     Route: 048
     Dates: start: 20120229, end: 20130207
  2. JANUMET [Suspect]
     Indication: TYPE 2 DIABETES MELLITUS
     Dosage: 50/1000 MG,BID
     Route: 048
     Dates: start: 20110214, end: 20120209

REACTIONS (53)
  - Adenocarcinoma pancreas [Not Recovered/Not Resolved]
  - Pancreatic mass [Unknown]
  - Anaemia [Unknown]
  - Cardiac arrest [Fatal]
  - Metastatic neoplasm [Fatal]
  - Malignant neoplasm of unknown primary site [Fatal]
  - Cardiopulmonary failure [Fatal]
  - Gastrointestinal haemorrhage [Unknown]
  - Hospitalisation [Unknown]
  - Hospitalisation [Unknown]
  - Diabetes mellitus inadequate control [Unknown]
  - Myocardial infarction [Unknown]
  - Packed red blood cell transfusion [Unknown]
  - Gastrointestinal haemorrhage [Unknown]
  - Metastatic neoplasm [Unknown]
  - Investigation [Unknown]
  - Hyperglycaemia [Unknown]
  - Deep vein thrombosis [Unknown]
  - Renal failure chronic [Unknown]
  - Anaemia [Unknown]
  - Renal failure [Unknown]
  - Oedema peripheral [Unknown]
  - Blood glucose increased [Unknown]
  - Abdominal tenderness [Unknown]
  - Atrioventricular block first degree [Unknown]
  - QRS axis abnormal [Unknown]
  - Renal cyst [Unknown]
  - Cholelithiasis [Unknown]
  - Hepatic cirrhosis [Unknown]
  - Liver disorder [Unknown]
  - Rectal polyp [Unknown]
  - Haemorrhoids [Unknown]
  - Gastrointestinal disorder [Unknown]
  - Anal sphincter atony [Unknown]
  - Polypectomy [Unknown]
  - Gastrointestinal stromal tumour [Unknown]
  - Paraganglion neoplasm [Unknown]
  - Hepatic lesion [Unknown]
  - Carbohydrate antigen 19-9 increased [Unknown]
  - Dementia [Unknown]
  - Cellulitis [Unknown]
  - Peripheral venous disease [Unknown]
  - Peripheral vascular disorder [Unknown]
  - Generalised oedema [Unknown]
  - Electrocardiogram T wave abnormal [Unknown]
  - QRS axis abnormal [Unknown]
  - Cerebral atrophy [Unknown]
  - Cerebral ischaemia [Unknown]
  - Cardiac failure congestive [Unknown]
  - Appendicectomy [Unknown]
  - Hypotension [Unknown]
  - Hypothyroidism [Unknown]
  - Liver function test abnormal [Unknown]
